FAERS Safety Report 21478588 (Version 1)
Quarter: 2022Q4

REPORT INFORMATION
  Report Type: Spontaneous
  Country: US (occurrence: None)
  Receive Date: 20221019
  Receipt Date: 20221019
  Transmission Date: 20230113
  Serious: No
  Sender: FDA-Public Use
  Company Number: 2022A337199

PATIENT
  Age: 24391 Day
  Sex: Female
  Weight: 82.1 kg

DRUGS (1)
  1. SYMBICORT [Suspect]
     Active Substance: BUDESONIDE\FORMOTEROL FUMARATE DIHYDRATE
     Indication: Asthma
     Dosage: 160MCG/4.5MCG VIA INHALATION, 2 INHALATIONS TWICE DAILY
     Route: 055
     Dates: start: 2020

REACTIONS (2)
  - Intentional device misuse [Unknown]
  - Device defective [Unknown]

NARRATIVE: CASE EVENT DATE: 20221002
